FAERS Safety Report 5140649-4 (Version None)
Quarter: 2006Q4

REPORT INFORMATION
  Report Type: 
  Country: None (occurrence: None)
  Receive Date: 20061031
  Receipt Date: 20060913
  Transmission Date: 20070319
  Serious: Yes (Hospitalization)
  Sender: FDA-Public Use
  Company Number: CA-BOEHRINGER INGELHEIM GMBH, GERMANY-2006-CN-00484CN

PATIENT
  Sex: Female

DRUGS (5)
  1. MICARDIS [Suspect]
  2. LIPITOR [Concomitant]
  3. CELEXA [Concomitant]
  4. ASAPHEN [Concomitant]
  5. ATIVAN [Concomitant]

REACTIONS (2)
  - CAROTID ARTERY STENOSIS [None]
  - CAROTID ARTERY THROMBOSIS [None]
